FAERS Safety Report 7800893-1 (Version None)
Quarter: 2011Q4

REPORT INFORMATION
  Report Type: 
  Country: None (occurrence: None)
  Receive Date: 20111006
  Receipt Date: 20110929
  Transmission Date: 20120403
  Serious: Yes (Hospitalization, Disabling, Other)
  Sender: FDA-Public Use
  Company Number: US-MERCK-1103USA03949

PATIENT
  Age: 40 Year
  Sex: Female
  Weight: 69 kg

DRUGS (5)
  1. FOSAMAX [Suspect]
     Route: 048
     Dates: start: 20020101, end: 20060101
  2. PREMARIN [Concomitant]
     Indication: HORMONE REPLACEMENT THERAPY
     Route: 065
     Dates: start: 19970101
  3. PREMARIN [Concomitant]
     Route: 065
     Dates: end: 20040101
  4. VITAMINS (UNSPECIFIED) [Concomitant]
     Route: 065
  5. FOSAMAX [Suspect]
     Indication: OSTEOPOROSIS
     Route: 048
     Dates: start: 20000101, end: 20051128

REACTIONS (36)
  - ABDOMINAL PAIN [None]
  - FEMUR FRACTURE [None]
  - STRESS URINARY INCONTINENCE [None]
  - HOT FLUSH [None]
  - EPICONDYLITIS [None]
  - RIB FRACTURE [None]
  - HYPERURICOSURIA [None]
  - HYPERCALCIURIA [None]
  - CHEST PAIN [None]
  - ARTHRITIS [None]
  - GASTROOESOPHAGEAL REFLUX DISEASE [None]
  - TENDONITIS [None]
  - OSTEODYSTROPHY [None]
  - ALOPECIA [None]
  - DIABETES MELLITUS [None]
  - URINARY INCONTINENCE [None]
  - BURSITIS [None]
  - MAJOR DEPRESSION [None]
  - JAW FRACTURE [None]
  - DEVICE FAILURE [None]
  - FOOT FRACTURE [None]
  - HYPERTENSION [None]
  - VITAMIN D DEFICIENCY [None]
  - TOOTH FRACTURE [None]
  - OSTEOARTHRITIS [None]
  - ABDOMINAL DISCOMFORT [None]
  - CARDIAC STRESS TEST ABNORMAL [None]
  - ANXIETY [None]
  - CYSTOCELE [None]
  - DEPRESSION [None]
  - OBSESSIVE-COMPULSIVE DISORDER [None]
  - NASAL SEPTUM PERFORATION [None]
  - HEPATIC STEATOSIS [None]
  - GASTRITIS [None]
  - LYMPHOPROLIFERATIVE DISORDER [None]
  - LIVER FUNCTION TEST ABNORMAL [None]
